FAERS Safety Report 13597646 (Version 3)
Quarter: 2018Q1

REPORT INFORMATION
  Report Type: Spontaneous
  Country: FR (occurrence: FR)
  Receive Date: 20170531
  Receipt Date: 20180309
  Transmission Date: 20180508
  Serious: Yes (Life-Threatening)
  Sender: FDA-Public Use
  Company Number: FR-009507513-1705FRA011498

PATIENT
  Age: 88 Year
  Sex: Female
  Weight: 64 kg

DRUGS (3)
  1. DIPROSONE [Suspect]
     Active Substance: BETAMETHASONE DIPROPIONATE
     Indication: ECZEMA
     Dosage: UNKNOWN
     Route: 061
     Dates: start: 20170401, end: 2017
  2. DERMOVAL (BETAMETHASONE VALERATE) [Suspect]
     Active Substance: BETAMETHASONE VALERATE
     Indication: DERMATITIS BULLOUS
     Dosage: 30 G, QD
     Route: 061
     Dates: start: 20170419, end: 20170425
  3. CORTANCYL [Interacting]
     Active Substance: PREDNISONE
     Indication: DERMATITIS BULLOUS
     Dosage: 25 MG, QD
     Route: 048
     Dates: start: 20170421, end: 2017

REACTIONS (2)
  - Necrotising soft tissue infection [Recovered/Resolved with Sequelae]
  - Septic shock [Recovered/Resolved]

NARRATIVE: CASE EVENT DATE: 20170426
